FAERS Safety Report 6273055-X (Version None)
Quarter: 2009Q3

REPORT INFORMATION
  Report Type: 
  Country: None (occurrence: None)
  Receive Date: 20090715
  Receipt Date: 20090715
  Transmission Date: 20100115
  Serious: No
  Sender: FDA-Public Use
  Company Number: None

PATIENT
  Age: 41 Year
  Sex: Female
  Weight: 97.977 kg

DRUGS (1)
  1. PROVENTIL-HFA [Suspect]
     Indication: ASTHMA
     Dosage: 1 OR 2 PUFFS A DAY 1/DAY OTHER
     Route: 050
     Dates: start: 20090303, end: 20090501

REACTIONS (4)
  - BURNING SENSATION [None]
  - LUNG DISORDER [None]
  - PRODUCT QUALITY ISSUE [None]
  - RESPIRATORY TRACT IRRITATION [None]
